FAERS Safety Report 23249316 (Version 1)
Quarter: 2023Q4

REPORT INFORMATION
  Report Type: Report from Study
  Country: US (occurrence: US)
  Receive Date: 20231201
  Receipt Date: 20231201
  Transmission Date: 20240110
  Serious: Yes (Other)
  Sender: FDA-Public Use
  Company Number: US-AZURITY PHARMACEUTICALS, INC.-US-2023ARB004961

PATIENT
  Sex: Female

DRUGS (80)
  1. ZONISAMIDE [Suspect]
     Active Substance: ZONISAMIDE
     Indication: Seizure
     Dosage: UNK
  2. ZONISAMIDE [Suspect]
     Active Substance: ZONISAMIDE
     Indication: Myoclonic epilepsy
  3. ZONISAMIDE [Suspect]
     Active Substance: ZONISAMIDE
     Indication: Petit mal epilepsy
  4. ZONISAMIDE [Suspect]
     Active Substance: ZONISAMIDE
     Indication: Infantile spasms
  5. ZONISAMIDE [Suspect]
     Active Substance: ZONISAMIDE
     Indication: Tonic convulsion
  6. TOPIRAMATE [Suspect]
     Active Substance: TOPIRAMATE
     Indication: Seizure
     Dosage: UNK
  7. TOPIRAMATE [Suspect]
     Active Substance: TOPIRAMATE
     Indication: Myoclonic epilepsy
  8. TOPIRAMATE [Suspect]
     Active Substance: TOPIRAMATE
     Indication: Petit mal epilepsy
  9. TOPIRAMATE [Suspect]
     Active Substance: TOPIRAMATE
     Indication: Infantile spasms
  10. TOPIRAMATE [Suspect]
     Active Substance: TOPIRAMATE
     Indication: Tonic convulsion
  11. ACETAZOLAMIDE [Suspect]
     Active Substance: ACETAZOLAMIDE
     Indication: Seizure
     Dosage: UNK
  12. ACETAZOLAMIDE [Suspect]
     Active Substance: ACETAZOLAMIDE
     Indication: Myoclonic epilepsy
  13. ACETAZOLAMIDE [Suspect]
     Active Substance: ACETAZOLAMIDE
     Indication: Petit mal epilepsy
  14. ACETAZOLAMIDE [Suspect]
     Active Substance: ACETAZOLAMIDE
     Indication: Infantile spasms
  15. ACETAZOLAMIDE [Suspect]
     Active Substance: ACETAZOLAMIDE
     Indication: Tonic convulsion
  16. CARBAMAZEPINE [Suspect]
     Active Substance: CARBAMAZEPINE
     Indication: Seizure
     Dosage: UNK
  17. CARBAMAZEPINE [Suspect]
     Active Substance: CARBAMAZEPINE
     Indication: Myoclonic epilepsy
  18. CARBAMAZEPINE [Suspect]
     Active Substance: CARBAMAZEPINE
     Indication: Petit mal epilepsy
  19. CARBAMAZEPINE [Suspect]
     Active Substance: CARBAMAZEPINE
     Indication: Infantile spasms
  20. CARBAMAZEPINE [Suspect]
     Active Substance: CARBAMAZEPINE
     Indication: Tonic convulsion
  21. CLOBAZAM [Suspect]
     Active Substance: CLOBAZAM
     Indication: Seizure
     Dosage: UNK
  22. CLOBAZAM [Suspect]
     Active Substance: CLOBAZAM
     Indication: Myoclonic epilepsy
  23. CLOBAZAM [Suspect]
     Active Substance: CLOBAZAM
     Indication: Petit mal epilepsy
  24. CLOBAZAM [Suspect]
     Active Substance: CLOBAZAM
     Indication: Infantile spasms
  25. CLOBAZAM [Suspect]
     Active Substance: CLOBAZAM
     Indication: Tonic convulsion
  26. ETHOSUXIMIDE [Suspect]
     Active Substance: ETHOSUXIMIDE
     Indication: Seizure
     Dosage: UNK
  27. ETHOSUXIMIDE [Suspect]
     Active Substance: ETHOSUXIMIDE
     Indication: Myoclonic epilepsy
  28. ETHOSUXIMIDE [Suspect]
     Active Substance: ETHOSUXIMIDE
     Indication: Petit mal epilepsy
  29. ETHOSUXIMIDE [Suspect]
     Active Substance: ETHOSUXIMIDE
     Indication: Infantile spasms
  30. ETHOSUXIMIDE [Suspect]
     Active Substance: ETHOSUXIMIDE
     Indication: Tonic convulsion
  31. FELBAMATE [Suspect]
     Active Substance: FELBAMATE
     Indication: Seizure
     Dosage: UNK
  32. FELBAMATE [Suspect]
     Active Substance: FELBAMATE
     Indication: Myoclonic epilepsy
  33. FELBAMATE [Suspect]
     Active Substance: FELBAMATE
     Indication: Petit mal epilepsy
  34. FELBAMATE [Suspect]
     Active Substance: FELBAMATE
     Indication: Infantile spasms
  35. FELBAMATE [Suspect]
     Active Substance: FELBAMATE
     Indication: Tonic convulsion
  36. LAMOTRIGINE [Suspect]
     Active Substance: LAMOTRIGINE
     Indication: Seizure
     Dosage: UNK
  37. LAMOTRIGINE [Suspect]
     Active Substance: LAMOTRIGINE
     Indication: Myoclonic epilepsy
  38. LAMOTRIGINE [Suspect]
     Active Substance: LAMOTRIGINE
     Indication: Petit mal epilepsy
  39. LAMOTRIGINE [Suspect]
     Active Substance: LAMOTRIGINE
     Indication: Infantile spasms
  40. LAMOTRIGINE [Suspect]
     Active Substance: LAMOTRIGINE
     Indication: Tonic convulsion
  41. LEVETIRACETAM [Suspect]
     Active Substance: LEVETIRACETAM
     Indication: Seizure
     Dosage: UNK
  42. LEVETIRACETAM [Suspect]
     Active Substance: LEVETIRACETAM
     Indication: Myoclonic epilepsy
  43. LEVETIRACETAM [Suspect]
     Active Substance: LEVETIRACETAM
     Indication: Petit mal epilepsy
  44. LEVETIRACETAM [Suspect]
     Active Substance: LEVETIRACETAM
     Indication: Infantile spasms
  45. LEVETIRACETAM [Suspect]
     Active Substance: LEVETIRACETAM
     Indication: Tonic convulsion
  46. OXCARBAZEPINE [Suspect]
     Active Substance: OXCARBAZEPINE
     Indication: Seizure
     Dosage: UNK
  47. OXCARBAZEPINE [Suspect]
     Active Substance: OXCARBAZEPINE
     Indication: Myoclonic epilepsy
  48. OXCARBAZEPINE [Suspect]
     Active Substance: OXCARBAZEPINE
     Indication: Petit mal epilepsy
  49. OXCARBAZEPINE [Suspect]
     Active Substance: OXCARBAZEPINE
     Indication: Infantile spasms
  50. OXCARBAZEPINE [Suspect]
     Active Substance: OXCARBAZEPINE
     Indication: Tonic convulsion
  51. RUFINAMIDE [Suspect]
     Active Substance: RUFINAMIDE
     Indication: Seizure
     Dosage: UNK
  52. RUFINAMIDE [Suspect]
     Active Substance: RUFINAMIDE
     Indication: Myoclonic epilepsy
  53. RUFINAMIDE [Suspect]
     Active Substance: RUFINAMIDE
     Indication: Petit mal epilepsy
  54. RUFINAMIDE [Suspect]
     Active Substance: RUFINAMIDE
     Indication: Infantile spasms
  55. RUFINAMIDE [Suspect]
     Active Substance: RUFINAMIDE
     Indication: Tonic convulsion
  56. TIAGABINE [Suspect]
     Active Substance: TIAGABINE
     Indication: Seizure
     Dosage: UNK
  57. TIAGABINE [Suspect]
     Active Substance: TIAGABINE
     Indication: Myoclonic epilepsy
  58. TIAGABINE [Suspect]
     Active Substance: TIAGABINE
     Indication: Petit mal epilepsy
  59. TIAGABINE [Suspect]
     Active Substance: TIAGABINE
     Indication: Infantile spasms
  60. TIAGABINE [Suspect]
     Active Substance: TIAGABINE
     Indication: Tonic convulsion
  61. LACOSAMIDE [Concomitant]
     Active Substance: LACOSAMIDE
     Indication: Seizure
     Dosage: UNK
  62. LACOSAMIDE [Concomitant]
     Active Substance: LACOSAMIDE
     Indication: Myoclonic epilepsy
  63. LACOSAMIDE [Concomitant]
     Active Substance: LACOSAMIDE
     Indication: Petit mal epilepsy
  64. LACOSAMIDE [Concomitant]
     Active Substance: LACOSAMIDE
     Indication: Infantile spasms
  65. LACOSAMIDE [Concomitant]
     Active Substance: LACOSAMIDE
     Indication: Tonic convulsion
  66. PHENOBARBITAL [Concomitant]
     Active Substance: PHENOBARBITAL
     Indication: Seizure
     Dosage: UNK
  67. PHENOBARBITAL [Concomitant]
     Active Substance: PHENOBARBITAL
     Indication: Myoclonic epilepsy
  68. PHENOBARBITAL [Concomitant]
     Active Substance: PHENOBARBITAL
     Indication: Petit mal epilepsy
  69. PHENOBARBITAL [Concomitant]
     Active Substance: PHENOBARBITAL
     Indication: Infantile spasms
  70. PHENOBARBITAL [Concomitant]
     Active Substance: PHENOBARBITAL
     Indication: Tonic convulsion
  71. PHENYTOIN [Concomitant]
     Active Substance: PHENYTOIN
     Indication: Seizure
     Dosage: UNK
  72. PHENYTOIN [Concomitant]
     Active Substance: PHENYTOIN
     Indication: Myoclonic epilepsy
  73. PHENYTOIN [Concomitant]
     Active Substance: PHENYTOIN
     Indication: Petit mal epilepsy
  74. PHENYTOIN [Concomitant]
     Active Substance: PHENYTOIN
     Indication: Infantile spasms
  75. PHENYTOIN [Concomitant]
     Active Substance: PHENYTOIN
     Indication: Tonic convulsion
  76. VIGABATRIN [Concomitant]
     Active Substance: VIGABATRIN
     Indication: Seizure
     Dosage: UNK
  77. VIGABATRIN [Concomitant]
     Active Substance: VIGABATRIN
     Indication: Myoclonic epilepsy
  78. VIGABATRIN [Concomitant]
     Active Substance: VIGABATRIN
     Indication: Petit mal epilepsy
  79. VIGABATRIN [Concomitant]
     Active Substance: VIGABATRIN
     Indication: Infantile spasms
  80. VIGABATRIN [Concomitant]
     Active Substance: VIGABATRIN
     Indication: Tonic convulsion

REACTIONS (1)
  - Toxicity to various agents [Unknown]
